FAERS Safety Report 9735440 (Version 1)
Quarter: 2013Q4

REPORT INFORMATION
  Report Type: Spontaneous
  Country: US (occurrence: US)
  Receive Date: 20131206
  Receipt Date: 20131206
  Transmission Date: 20140711
  Serious: No
  Sender: FDA-Public Use
  Company Number: US-GILEAD-2009-0022847

PATIENT
  Sex: Female
  Weight: 97.98 kg

DRUGS (12)
  1. LETAIRIS [Suspect]
     Route: 048
     Dates: start: 20080415
  2. COUMADIN [Concomitant]
  3. MUCINEX [Concomitant]
  4. CEPHALEXIN [Concomitant]
  5. DILAUDID [Concomitant]
  6. LEVAQUIN [Concomitant]
  7. SIMVASTATIN [Concomitant]
  8. ZOFRAN [Concomitant]
  9. LASIX [Concomitant]
  10. MUCOMYST [Concomitant]
  11. TYLENOL [Concomitant]
  12. POTASSIUM CHLORIDE [Concomitant]

REACTIONS (3)
  - Musculoskeletal pain [Unknown]
  - Musculoskeletal stiffness [Unknown]
  - Bone pain [Unknown]
